FAERS Safety Report 8405734-X (Version None)
Quarter: 2012Q2

REPORT INFORMATION
  Report Type: 
  Country: None (occurrence: None)
  Receive Date: 20120530
  Receipt Date: 20120530
  Transmission Date: 20120825
  Serious: No
  Sender: FDA-Public Use
  Company Number: None

PATIENT
  Sex: Female

DRUGS (3)
  1. RIBAVIRIN [Suspect]
     Indication: HEPATITIS C
     Dosage: 200MG 3AM + 2PM PO
     Route: 048
     Dates: start: 20120504, end: 20120525
  2. INCIVEK [Concomitant]
  3. PEGASYS [Suspect]
     Indication: HEPATITIS C
     Dosage: 180MCG WEEKLY SQ
     Route: 058
     Dates: start: 20120504, end: 20120525

REACTIONS (4)
  - DECREASED APPETITE [None]
  - GAIT DISTURBANCE [None]
  - CONSTIPATION [None]
  - ASTHENIA [None]
